FAERS Safety Report 5503833-3 (Version None)
Quarter: 2007Q4

REPORT INFORMATION
  Report Type: 
  Country: None (occurrence: None)
  Receive Date: 20071101
  Receipt Date: 20071024
  Transmission Date: 20080405
  Serious: Yes (Other)
  Sender: FDA-Public Use
  Company Number: PHFR2007GB02090

PATIENT
  Age: 45 Year
  Sex: Male
  Weight: 171 kg

DRUGS (5)
  1. CLOZARIL [Suspect]
     Indication: SCHIZOPHRENIA
     Route: 048
     Dates: start: 19930127
  2. CLOZARIL [Suspect]
     Dosage: 325 MG, BID
     Route: 048
     Dates: start: 20061117
  3. VALPROATE SODIUM [Concomitant]
     Indication: EPILEPSY
     Dosage: 1200 MG, BID
     Route: 048
     Dates: start: 20061018
  4. LEVETIRACETAM [Concomitant]
     Dosage: 250 MG, BID
     Route: 048
     Dates: start: 20070117
  5. VITAMINS [Concomitant]
     Dosage: 2 DAILY
     Dates: start: 20060505

REACTIONS (6)
  - BACILLUS INFECTION [None]
  - INFLUENZA [None]
  - LOWER RESPIRATORY TRACT INFECTION [None]
  - NEUTROPHIL COUNT DECREASED [None]
  - URINARY TRACT INFECTION [None]
  - WHITE BLOOD CELL COUNT DECREASED [None]
